FAERS Safety Report 7028778-1 (Version None)
Quarter: 2010Q4

REPORT INFORMATION
  Report Type: 
  Country: None (occurrence: None)
  Receive Date: 20101005
  Receipt Date: 20100920
  Transmission Date: 20110411
  Serious: Yes (Hospitalization, Other)
  Sender: FDA-Public Use
  Company Number: BR-MEDIMMUNE-MEDI-0011502

PATIENT
  Sex: Female
  Weight: 5.25 kg

DRUGS (10)
  1. SYNAGIS [Suspect]
     Indication: CARDIOMYOPATHY
     Route: 030
     Dates: start: 20100419, end: 20100419
  2. DIGOXIN [Concomitant]
     Route: 048
     Dates: start: 20100801
  3. FUROSEMIDE [Concomitant]
     Indication: DIURETIC THERAPY
     Route: 048
  4. FUROSEMIDE [Concomitant]
  5. CAPTOPRIL [Concomitant]
     Route: 048
     Dates: start: 20100201
  6. CAPTOPRIL [Concomitant]
     Route: 048
     Dates: start: 20100201
  7. NITROFURANTOIN [Concomitant]
     Route: 048
     Dates: start: 20100201
  8. PARACETAMOL [Concomitant]
     Route: 048
  9. METAMIZOLE SODIUM [Concomitant]
     Route: 048
  10. DOMPERIDONE [Concomitant]
     Dates: start: 20091208, end: 20100101

REACTIONS (14)
  - BLADDER DILATATION [None]
  - BRONCHIOLITIS [None]
  - COUGH [None]
  - CYSTITIS [None]
  - CYSTITIS KLEBSIELLA [None]
  - DYSPNOEA [None]
  - FATIGUE [None]
  - INFLUENZA [None]
  - KIDNEY INFECTION [None]
  - NASOPHARYNGITIS [None]
  - PYREXIA [None]
  - TACHYPNOEA [None]
  - URINARY TRACT INFECTION [None]
  - VOMITING [None]
